FAERS Safety Report 19603750 (Version 1)
Quarter: 2021Q3

REPORT INFORMATION
  Report Type: Spontaneous
  Country: US (occurrence: US)
  Receive Date: 20210723
  Receipt Date: 20210723
  Transmission Date: 20211014
  Serious: No
  Sender: FDA-Public Use
  Company Number: US-TEVA-2021-US-1934556

PATIENT
  Age: 73 Year
  Sex: Female
  Weight: 83.91 kg

DRUGS (5)
  1. ACYCLOVIR. [Concomitant]
     Active Substance: ACYCLOVIR
     Indication: BELL^S PALSY
     Dosage: 2000 MILLIGRAM DAILY;
     Route: 048
     Dates: start: 202104
  2. LISINOPRIL?HCTZ [Concomitant]
     Active Substance: HYDROCHLOROTHIAZIDE\LISINOPRIL
     Indication: BLOOD PRESSURE ABNORMAL
     Dosage: 20?25MG TABLETS, 1 TAB, ONCE A DAY, BY MOUTH, IN THE MORNING; PROBABLY ABOUT 5 YEARS
     Route: 048
  3. EZETIMIBE. [Concomitant]
     Active Substance: EZETIMIBE
     Indication: BLOOD CHOLESTEROL ABNORMAL
     Dosage: 10 MILLIGRAM DAILY; TAKING FOR ABOUT 6 MONTHS
     Route: 048
  4. PREDNISONE. [Suspect]
     Active Substance: PREDNISONE
     Indication: BELL^S PALSY
     Dosage: 60 MILLIGRAM DAILY;
     Route: 048
     Dates: start: 202104
  5. OMEPRAZOLE. [Concomitant]
     Active Substance: OMEPRAZOLE
     Indication: DYSPEPSIA
     Dosage: 20 MILLIGRAM DAILY; 1 CAPSULE EVERY MORNING BY MOUTH; STARTED TAKING  ABOUT 6 YEARS AGO
     Route: 048

REACTIONS (3)
  - Weight increased [Unknown]
  - Hyperphagia [Unknown]
  - Product use in unapproved indication [Unknown]

NARRATIVE: CASE EVENT DATE: 2021
